FAERS Safety Report 8891850 (Version 1)
Quarter: 2012Q4

REPORT INFORMATION
  Report Type: 
  Country: US (occurrence: US)
  Receive Date: 20121107
  Receipt Date: 20121107
  Transmission Date: 20130627
  Serious: No
  Sender: FDA-Public Use
  Company Number: US-AMGEN-USASP2011057924

PATIENT
  Sex: Male

DRUGS (2)
  1. ENBREL [Suspect]
     Indication: ANKYLOSING SPONDYLITIS
     Dosage: UNK
     Dates: start: 20110820, end: 2011
  2. ENBREL [Suspect]
     Indication: CROHN^S DISEASE

REACTIONS (1)
  - Drug ineffective [Not Recovered/Not Resolved]
